FAERS Safety Report 19869455 (Version 5)
Quarter: 2021Q4

REPORT INFORMATION
  Report Type: Spontaneous
  Country: US (occurrence: US)
  Receive Date: 20210923
  Receipt Date: 20211126
  Transmission Date: 20220303
  Serious: No
  Sender: FDA-Public Use
  Company Number: US-STRONGBRIDGE BIOPHARMA-2021-STR-000315

PATIENT
  Age: 39 Year
  Sex: Female

DRUGS (2)
  1. KEVEYIS [Suspect]
     Active Substance: DICHLORPHENAMIDE
     Indication: Familial periodic paralysis
     Dosage: 50 MG, QD
     Route: 048
     Dates: start: 20210910
  2. KEVEYIS [Suspect]
     Active Substance: DICHLORPHENAMIDE
     Dosage: 100 MG, QD (1/2 TABLET MORNING AND NOON AND 1 TABLET IN EVENING)
     Route: 048
     Dates: start: 20211104

REACTIONS (11)
  - Pain in extremity [Recovering/Resolving]
  - Decreased activity [Unknown]
  - Affect lability [Unknown]
  - Therapeutic response shortened [Unknown]
  - Candida infection [Unknown]
  - Disease recurrence [Unknown]
  - Muscular weakness [Unknown]
  - Metabolic acidosis [Recovering/Resolving]
  - Paraesthesia [Recovering/Resolving]
  - Hypoaesthesia [Unknown]
  - Wrong technique in product usage process [Unknown]

NARRATIVE: CASE EVENT DATE: 20210910
